FAERS Safety Report 5301071-0 (Version None)
Quarter: 2007Q2

REPORT INFORMATION
  Report Type: 
  Country: None (occurrence: None)
  Receive Date: 20070418
  Receipt Date: 20070405
  Transmission Date: 20071010
  Serious: Yes (Hospitalization)
  Sender: FDA-Public Use
  Company Number: US-ELI_LILLY_AND_COMPANY-US200607004334

PATIENT
  Sex: Female

DRUGS (3)
  1. FORTEO [Suspect]
     Indication: OSTEOPOROSIS
     Dosage: UNK, UNK
     Dates: start: 20060401
  2. FORTEO [Suspect]
  3. CELEBREX [Concomitant]
     Indication: PAIN
     Dates: start: 20060101

REACTIONS (10)
  - ARTHRALGIA [None]
  - BONE DISORDER [None]
  - BONE PAIN [None]
  - ERYTHEMA [None]
  - FEELING ABNORMAL [None]
  - HYPOAESTHESIA [None]
  - MASS [None]
  - MOBILITY DECREASED [None]
  - SPINAL DISORDER [None]
  - TREMOR [None]
